FAERS Safety Report 10877659 (Version 1)
Quarter: 2015Q1

REPORT INFORMATION
  Report Type: Spontaneous
  Country: IL (occurrence: IL)
  Receive Date: 20150302
  Receipt Date: 20150302
  Transmission Date: 20150721
  Serious: Yes (Death, Other)
  Sender: FDA-Public Use
  Company Number: IL-ASTRAZENECA-2015SE10244

PATIENT
  Age: 76 Year
  Sex: Male
  Weight: 115 kg

DRUGS (13)
  1. VICTOZA [Concomitant]
     Active Substance: LIRAGLUTIDE
     Indication: DIABETES MELLITUS
     Route: 030
     Dates: start: 20130205
  2. FORXIGA [Suspect]
     Active Substance: DAPAGLIFLOZIN
     Indication: DIABETES MELLITUS
     Route: 048
     Dates: start: 20141217, end: 20150118
  3. XATRAL [Concomitant]
     Active Substance: ALFUZOSIN
     Route: 048
     Dates: start: 20090910
  4. ATENOLOL. [Concomitant]
     Active Substance: ATENOLOL
     Indication: HYPERTENSION
     Dates: start: 20130310
  5. REMOTIV [Concomitant]
     Indication: ANTIDEPRESSANT THERAPY
     Route: 048
     Dates: start: 20130115
  6. MICROPIRIN [Concomitant]
     Route: 048
     Dates: start: 20060131
  7. AVODART [Concomitant]
     Active Substance: DUTASTERIDE
     Indication: HYPERTENSION
     Route: 048
  8. FORXIGA [Suspect]
     Active Substance: DAPAGLIFLOZIN
     Indication: ACUTE PAINFUL NEUROPATHY OF RAPID GLYCAEMIC CONTROL
     Route: 048
     Dates: start: 20141217, end: 20150118
  9. FUSID [Concomitant]
     Active Substance: FUROSEMIDE
     Indication: PRODUCT USED FOR UNKNOWN INDICATION
  10. METFORMIN [Concomitant]
     Active Substance: METFORMIN HYDROCHLORIDE
     Indication: DIABETES MELLITUS
     Route: 048
  11. LEVEMIR [Concomitant]
     Active Substance: INSULIN DETEMIR
     Indication: DIABETES MELLITUS
     Route: 030
     Dates: start: 20110701
  12. LOSARTAN [Concomitant]
     Active Substance: LOSARTAN
     Indication: HYPERTENSION
     Route: 048
     Dates: start: 20130310
  13. NOVONORM [Concomitant]
     Active Substance: REPAGLINIDE

REACTIONS (2)
  - Hyperpyrexia [Fatal]
  - Micturition urgency [Fatal]

NARRATIVE: CASE EVENT DATE: 20150118
